FAERS Safety Report 7128174-2 (Version None)
Quarter: 2010Q4

REPORT INFORMATION
  Report Type: 
  Country: None (occurrence: None)
  Receive Date: 20101130
  Receipt Date: 20101123
  Transmission Date: 20110411
  Serious: Yes (Other)
  Sender: FDA-Public Use
  Company Number: US-AMGEN-USASP2010006382

PATIENT

DRUGS (2)
  1. ENBREL [Suspect]
     Indication: RHEUMATOID ARTHRITIS
     Dates: start: 20100427, end: 20100701
  2. GOLIMUMAB [Concomitant]

REACTIONS (4)
  - CHEST PAIN [None]
  - JOINT SWELLING [None]
  - THYROID CANCER [None]
  - URTICARIA [None]
